FAERS Safety Report 12179787 (Version 1)
Quarter: 2016Q1

REPORT INFORMATION
  Report Type: Spontaneous
  Country: US (occurrence: None)
  Receive Date: 20160314
  Receipt Date: 20160314
  Transmission Date: 20160526
  Serious: Yes (Disabling)
  Sender: FDA-Public Use
  Company Number: None

PATIENT
  Age: 38 Year
  Sex: Female
  Weight: 49.44 kg

DRUGS (2)
  1. CHANTIX [Suspect]
     Active Substance: VARENICLINE TARTRATE
     Indication: SMOKING CESSATION THERAPY
     Dosage: 1 PILL TWICE DAILY TAKEN BY MOUTH
     Route: 048
     Dates: start: 20160212, end: 20160308
  2. TYLENOL [Suspect]
     Active Substance: ACETAMINOPHEN

REACTIONS (12)
  - Sleep disorder [None]
  - Thinking abnormal [None]
  - Motor dysfunction [None]
  - Abnormal dreams [None]
  - Impatience [None]
  - Gastrointestinal disorder [None]
  - Mental disorder [None]
  - Nausea [None]
  - Aphasia [None]
  - Night sweats [None]
  - Affective disorder [None]
  - Aggression [None]

NARRATIVE: CASE EVENT DATE: 20160312
